FAERS Safety Report 7093686-7 (Version None)
Quarter: 2010Q4

REPORT INFORMATION
  Report Type: 
  Country: None (occurrence: None)
  Receive Date: 20101110
  Receipt Date: 20101026
  Transmission Date: 20110411
  Serious: Yes (Other)
  Sender: FDA-Public Use
  Company Number: US-BAYER-201020590NA

PATIENT
  Age: 36 Year
  Sex: Female
  Weight: 159 kg

DRUGS (8)
  1. YASMIN [Suspect]
     Indication: MENSTRUATION IRREGULAR
     Route: 048
     Dates: start: 20060322, end: 20060420
  2. SINGULAIR [Concomitant]
     Indication: ASTHMA
     Route: 048
     Dates: start: 20020101, end: 20100101
  3. FOSINOPRIL SODIUM [Concomitant]
     Indication: HYPERTENSION
     Route: 048
     Dates: start: 20040331, end: 20060613
  4. ALBUTEROL [Concomitant]
     Indication: ASTHMA
     Route: 055
  5. ADVAIR DISKUS 100/50 [Concomitant]
     Dosage: 1-2 PUFFS
     Route: 055
     Dates: start: 20020101, end: 20100101
  6. SYNTHROID [Concomitant]
     Indication: HYPOTHYROIDISM
     Route: 048
     Dates: start: 20030101, end: 20100101
  7. BUPROPION [Concomitant]
     Indication: DEPRESSION
     Dosage: DAILY AS DIRECTED
     Route: 048
     Dates: start: 20050101, end: 20100101
  8. KETOROLAC TROMETHAMINE [Concomitant]
     Route: 048
     Dates: start: 20060511

REACTIONS (4)
  - DEEP VEIN THROMBOSIS [None]
  - OEDEMA PERIPHERAL [None]
  - PAIN IN EXTREMITY [None]
  - PULMONARY EMBOLISM [None]
